FAERS Safety Report 13117385 (Version 2)
Quarter: 2017Q1

REPORT INFORMATION
  Report Type: Spontaneous
  Country: US (occurrence: US)
  Receive Date: 20170116
  Receipt Date: 20170210
  Transmission Date: 20170428
  Serious: Yes (Hospitalization, Other)
  Sender: FDA-Public Use
  Company Number: US-BAYER-2017-008114

PATIENT
  Age: 83 Year
  Sex: Female
  Weight: 82 kg

DRUGS (6)
  1. CRANBERRY EXTRACT [Concomitant]
     Active Substance: CRANBERRY JUICE
     Dosage: UNK
  2. FAMOTIDINE. [Concomitant]
     Active Substance: FAMOTIDINE
     Dosage: 20 MG, UNK
  3. FISH OIL [Concomitant]
     Active Substance: FISH OIL
     Dosage: UNK
  4. TYLENOL [Concomitant]
     Active Substance: ACETAMINOPHEN
     Dosage: 325 MG, PRN
  5. GADAVIST [Suspect]
     Active Substance: GADOBUTROL
     Indication: NUCLEAR MAGNETIC RESONANCE IMAGING
     Dosage: UNK, ONCE
     Route: 042
     Dates: start: 20170113, end: 20170113
  6. MAGNESIUM [MAGNESIUM] [Concomitant]
     Dosage: 500 MG, UNK

REACTIONS (3)
  - Anaphylactic shock [Recovered/Resolved]
  - Pruritus generalised [None]
  - Hypotension [Recovered/Resolved]

NARRATIVE: CASE EVENT DATE: 20170113
